FAERS Safety Report 18791340 (Version 6)
Quarter: 2021Q1

REPORT INFORMATION
  Report Type: Report from Study
  Country: None (occurrence: ES)
  Receive Date: 20210127
  Receipt Date: 20210223
  Transmission Date: 20210419
  Serious: Yes (Death, Hospitalization)
  Sender: FDA-Public Use
  Company Number: ES-ABBVIE-21K-144-3745366-00

PATIENT
  Age: 75 Year
  Sex: Female

DRUGS (2)
  1. DUODOPA [Suspect]
     Active Substance: CARBIDOPA\LEVODOPA
  2. DUODOPA [Suspect]
     Active Substance: CARBIDOPA\LEVODOPA
     Indication: PARKINSON^S DISEASE
     Route: 050
     Dates: start: 20190704

REACTIONS (4)
  - COVID-19 pneumonia [Recovering/Resolving]
  - Respiratory failure [Fatal]
  - Device dislocation [Recovered/Resolved]
  - COVID-19 [Fatal]

NARRATIVE: CASE EVENT DATE: 202101
